FAERS Safety Report 5795319-6 (Version None)
Quarter: 2008Q2

REPORT INFORMATION
  Report Type: 
  Country: None (occurrence: None)
  Receive Date: 20080601
  Receipt Date: 20080129
  Transmission Date: 20081010
  Serious: No
  Sender: FDA-Public Use
  Company Number: US200801006687

PATIENT
  Sex: Female

DRUGS (4)
  1. BYETTA [Suspect]
     Dosage: SUBCUTANEOUS; SUBCUTANEOUS
     Route: 058
     Dates: start: 20070601, end: 20071001
  2. BYETTA [Suspect]
     Dosage: SUBCUTANEOUS; SUBCUTANEOUS
     Route: 058
     Dates: start: 20080101
  3. EXENATIDE UNK STRENGTH PEN, DISPOSABLE DEVICE (EXENATIDE PEN [Concomitant]
  4. METHIMAZOLE [Concomitant]

REACTIONS (1)
  - MENSTRUATION IRREGULAR [None]
